FAERS Safety Report 7162341-7 (Version None)
Quarter: 2010Q4

REPORT INFORMATION
  Report Type: 
  Country: None (occurrence: None)
  Receive Date: 20101215
  Receipt Date: 20090219
  Transmission Date: 20110411
  Serious: Yes (Other)
  Sender: FDA-Public Use
  Company Number: FR-PFIZER INC-2009285777

PATIENT
  Age: 32 Year

DRUGS (4)
  1. LYRICA [Suspect]
     Indication: MULTIPLE SCLEROSIS
     Dosage: 75 MG, 1X/DAY
     Dates: start: 20090501
  2. LYRICA [Suspect]
     Dosage: 75 MG, 2X/DAY
  3. LYRICA [Suspect]
     Dosage: UNK
  4. CORTISONE [Concomitant]
     Dosage: UNK
     Route: 040
     Dates: start: 20090101, end: 20090101

REACTIONS (3)
  - GINGIVAL RECESSION [None]
  - TEETH BRITTLE [None]
  - TOOTH LOSS [None]
